FAERS Safety Report 8811523 (Version 1)
Quarter: 2012Q4

REPORT INFORMATION
  Report Type: 
  Country: US (occurrence: US)
  Receive Date: 20120927
  Receipt Date: 20120927
  Transmission Date: 20130627
  Serious: No
  Sender: FDA-Public Use
  Company Number: US-009507513-2012SP024530

PATIENT
  Sex: Female

DRUGS (1)
  1. MIRALAX [Suspect]
     Indication: PRODUCT USED FOR UNKNOWN INDICATION
     Dosage: UNK UNK, Unknown
     Route: 048
     Dates: start: 201204

REACTIONS (3)
  - Oedema peripheral [Unknown]
  - Bowel movement irregularity [Unknown]
  - Adverse reaction [Unknown]
